FAERS Safety Report 8450003-5 (Version None)
Quarter: 2012Q2

REPORT INFORMATION
  Report Type: 
  Country: None (occurrence: None)
  Receive Date: 20120620
  Receipt Date: 20120619
  Transmission Date: 20120825
  Serious: Yes (Other)
  Sender: FDA-Public Use
  Company Number: PHHY2012NL040908

PATIENT
  Sex: Female
  Weight: 62 kg

DRUGS (3)
  1. ZOMETA [Suspect]
     Indication: BREAST CANCER METASTATIC
     Dosage: 4 MG, / 100ML ONCE IN 28 DAYS
     Route: 042
     Dates: start: 20110804
  2. ZOMETA [Suspect]
     Dosage: 4 MG, / 100ML ONCE IN 28 DAYS
     Route: 042
     Dates: start: 20120413
  3. ZOMETA [Suspect]
     Dosage: 4 MG, / 100ML ONCE IN 28 DAYS
     Route: 042
     Dates: start: 20120511

REACTIONS (3)
  - METASTASES TO LIVER [None]
  - HEPATIC PAIN [None]
  - ABDOMINAL PAIN [None]
